FAERS Safety Report 14715231 (Version 4)
Quarter: 2018Q2

REPORT INFORMATION
  Report Type: Report from Study
  Country: CN (occurrence: CN)
  Receive Date: 20180404
  Receipt Date: 20180529
  Transmission Date: 20180711
  Serious: Yes (Hospitalization)
  Sender: FDA-Public Use
  Company Number: CN-ROCHE-2099192

PATIENT
  Age: 63 Year
  Sex: Female
  Weight: 50 kg

DRUGS (8)
  1. PHENOBARBITAL. [Concomitant]
     Active Substance: PHENOBARBITAL
     Dosage: REDUCT BILIRUBIN
     Route: 048
     Dates: start: 20180323
  2. LACTULOSE. [Concomitant]
     Active Substance: LACTULOSE
     Dosage: LIQUID?SOFTEN THE STOOL?DOSE: 1 OTHER
     Route: 048
     Dates: start: 20180326
  3. ATEZOLIZUMAB. [Suspect]
     Active Substance: ATEZOLIZUMAB
     Indication: SMALL CELL LUNG CANCER EXTENSIVE STAGE
     Dosage: MOST RECENT DOSE: 01/FEB/2018, AT 10:30
     Route: 042
     Dates: start: 20180108
  4. POTASSIUM CITRATE. [Concomitant]
     Active Substance: POTASSIUM CITRATE
     Indication: MINERAL SUPPLEMENTATION
     Dosage: DOSE: 1 OTHER
     Route: 048
     Dates: start: 20180323
  5. CARBOPLATIN. [Suspect]
     Active Substance: CARBOPLATIN
     Indication: SMALL CELL LUNG CANCER EXTENSIVE STAGE
     Dosage: ACHIEVE AN INITIAL TARGET AUC OF 5 MG/ML/MIN WILL BE ADMINISTERED ON DAY 1 OF EACH 21-DAY CYCLE?MOST
     Route: 042
     Dates: start: 20180108
  6. DIYUSHENGBAI [Concomitant]
     Indication: WHITE BLOOD CELL COUNT DECREASED
     Route: 048
     Dates: start: 20180111
  7. DOMPERIDONE [Concomitant]
     Active Substance: DOMPERIDONE
     Dosage: DIGESTIBILITY
     Route: 048
     Dates: start: 20180327
  8. ETOPOSIDE. [Suspect]
     Active Substance: ETOPOSIDE
     Indication: SMALL CELL LUNG CANCER EXTENSIVE STAGE
     Dosage: MOST RECENT DOSE (150 MG, ONCE PER 3 WEEKS) OF ETOPOSIDE:  03/FEB/2018, AT 10:41
     Route: 042
     Dates: start: 20180108

REACTIONS (1)
  - Drug-induced liver injury [Recovered/Resolved]

NARRATIVE: CASE EVENT DATE: 20180315
